FAERS Safety Report 22636877 (Version 1)
Quarter: 2023Q2

REPORT INFORMATION
  Report Type: Spontaneous
  Country: US (occurrence: US)
  Receive Date: 20230626
  Receipt Date: 20230626
  Transmission Date: 20230722
  Serious: No
  Sender: FDA-Public Use
  Company Number: US-Accord-264768

PATIENT
  Age: 72 Year
  Sex: Female
  Weight: 94.8 kg

DRUGS (22)
  1. AMLODIPINE [Suspect]
     Active Substance: AMLODIPINE BESYLATE
     Indication: Product used for unknown indication
  2. MIFEPRISTONE [Suspect]
     Active Substance: MIFEPRISTONE
     Indication: Cushing^s syndrome
     Dosage: 300 MG, QD
     Route: 048
     Dates: start: 20220411, end: 20220504
  3. ASPIRIN [Concomitant]
     Active Substance: ASPIRIN
  4. ATENOLOL [Concomitant]
     Active Substance: ATENOLOL
  5. COENZYME Q10 [Concomitant]
     Active Substance: DIETARY SUPPLEMENT\UBIDECARENONE
  6. CRANBERRY [Concomitant]
     Active Substance: CRANBERRY
  7. MELATONIN [Concomitant]
     Active Substance: MELATONIN
  8. PROBIOTICS NOS [Concomitant]
     Active Substance: PROBIOTICS NOS
  9. FAMOTIDINE [Concomitant]
     Active Substance: FAMOTIDINE
  10. FEXOFENADINE [Concomitant]
     Active Substance: FEXOFENADINE HYDROCHLORIDE
  11. METHENAMINE [Concomitant]
     Active Substance: METHENAMINE
  12. OMEGA 3 [Concomitant]
     Active Substance: CAPSAICIN
  13. VITAMINS [Concomitant]
     Active Substance: VITAMINS
  14. PEPSIN [Concomitant]
     Active Substance: PEPSIN
  15. PRAVASTATIN [Concomitant]
     Active Substance: PRAVASTATIN
  16. ASCORBIC ACID W/BETACAROTENE/TOCOPH [Concomitant]
  17. SYNTHROID [Concomitant]
     Active Substance: LEVOTHYROXINE SODIUM
  18. VALSARTAN [Concomitant]
     Active Substance: VALSARTAN
  19. ZINC [Concomitant]
     Active Substance: ZINC
  20. VITAMIN D3 [Concomitant]
     Active Substance: CHOLECALCIFEROL
  21. SPIRONOLACTONE [Concomitant]
     Active Substance: SPIRONOLACTONE
  22. MIFEPRISTONE [Suspect]
     Active Substance: MIFEPRISTONE
     Indication: Cushing^s syndrome
     Dosage: 600 MG, QD
     Route: 048
     Dates: start: 20220505

REACTIONS (6)
  - Feeling abnormal [Unknown]
  - Constipation [Recovering/Resolving]
  - Back pain [Not Recovered/Not Resolved]
  - Nasopharyngitis [Unknown]
  - Blood pressure decreased [Unknown]
  - Fatigue [Unknown]

NARRATIVE: CASE EVENT DATE: 20220401
